FAERS Safety Report 14480371 (Version 1)
Quarter: 2018Q1

REPORT INFORMATION
  Report Type: Spontaneous
  Country: US (occurrence: US)
  Receive Date: 20180201
  Receipt Date: 20180201
  Transmission Date: 20180509
  Serious: No
  Sender: FDA-Public Use
  Company Number: None

PATIENT
  Sex: Female
  Weight: 79.38 kg

DRUGS (3)
  1. DICLOFENAC 1% GEL GENERIC [Suspect]
     Active Substance: DICLOFENAC
     Dosage: 2-4 G TID TOP
     Route: 061
     Dates: start: 201606
  2. XELJANZ XR [Concomitant]
     Active Substance: TOFACITINIB CITRATE
  3. METHOTREXATE 50MG/2ML GENERIC [Suspect]
     Active Substance: METHOTREXATE
     Indication: RHEUMATOID ARTHRITIS
     Route: 058
     Dates: start: 201306

REACTIONS (5)
  - Drug ineffective [None]
  - Joint swelling [None]
  - Peripheral swelling [None]
  - Musculoskeletal stiffness [None]
  - Pain [None]
